FAERS Safety Report 5580214-8 (Version None)
Quarter: 2008Q1

REPORT INFORMATION
  Report Type: 
  Country: None (occurrence: None)
  Receive Date: 20080103
  Receipt Date: 20071231
  Transmission Date: 20080703
  Serious: Yes (Hospitalization)
  Sender: FDA-Public Use
  Company Number: US-BRISTOL-MYERS SQUIBB COMPANY-13904933

PATIENT
  Age: 44 Year
  Sex: Female

DRUGS (4)
  1. IFOSFAMIDE [Suspect]
     Indication: BURKITT'S LYMPHOMA
     Dosage: 1 DOSAGE FORM = 1.5 G/M 2
  2. ETOPOSIDE [Suspect]
     Indication: BURKITT'S LYMPHOMA
  3. CYTARABINE [Suspect]
     Indication: BURKITT'S LYMPHOMA
  4. RADIATION THERAPY [Suspect]
     Indication: BURKITT'S LYMPHOMA

REACTIONS (3)
  - FUNGAL OESOPHAGITIS [None]
  - GASTRITIS FUNGAL [None]
  - PSYCHOTIC DISORDER [None]
